FAERS Safety Report 25858246 (Version 1)
Quarter: 2025Q3

REPORT INFORMATION
  Report Type: Spontaneous
  Country: US (occurrence: US)
  Receive Date: 20250929
  Receipt Date: 20250929
  Transmission Date: 20251021
  Serious: No
  Sender: Kenvue
  Company Number: US-KENVUE-20250809023

PATIENT
  Sex: Female

DRUGS (21)
  1. IMODIUM [Suspect]
     Active Substance: LOPERAMIDE HYDROCHLORIDE
     Indication: Diarrhoea
     Route: 065
  2. TREPROSTINIL [Concomitant]
     Active Substance: TREPROSTINIL
     Indication: Pulmonary arterial hypertension
     Dosage: 1.875 MG (1 TABLET OF 1 MG, 3 TABLETS OF 0.25 MG AND 1 TABLET OF 0.125 MG), THRICE A DAY
     Route: 048
     Dates: end: 202501
  3. TREPROSTINIL [Concomitant]
     Active Substance: TREPROSTINIL
     Dosage: 1.75  MG (1 TABLET OF 1 MG AND 3 TABLETS OF 0.25 MG), THRICE A DAY
     Route: 048
     Dates: start: 202501, end: 2025
  4. TREPROSTINIL [Concomitant]
     Active Substance: TREPROSTINIL
     Dosage: 2.25 MG (2 TABLETS OF 1 MG AND 1 TABLET OF 0.25 MG), THRICE A DAY
     Route: 048
     Dates: start: 2025, end: 2025
  5. TREPROSTINIL [Concomitant]
     Active Substance: TREPROSTINIL
     Dosage: 2.5 MILLIGRAM, THRICE A DAY
     Route: 048
     Dates: start: 2025, end: 202503
  6. TREPROSTINIL [Concomitant]
     Active Substance: TREPROSTINIL
     Dosage: 2.625 MILLIGRAM, THRICE A DAY
     Route: 048
     Dates: start: 202503, end: 2025
  7. TREPROSTINIL [Concomitant]
     Active Substance: TREPROSTINIL
     Dosage: 2.75 MILLIGRAM, THRICE A DAY
     Route: 048
     Dates: start: 2025, end: 20250704
  8. TREPROSTINIL [Concomitant]
     Active Substance: TREPROSTINIL
     Dosage: 2.875 MG, (1 TABLET OF 0.125 MG, 0.25 MG AND 2.5 MG EACH), THRICE A DAY
     Route: 048
     Dates: start: 20250704, end: 2025
  9. TREPROSTINIL [Concomitant]
     Active Substance: TREPROSTINIL
     Dosage: 3.375 MG (1 TABLET OF 0.125 MG, 2.5 MG AND 3 TABLETS OF 0.25 MG), THRICE A DAY
     Route: 048
     Dates: start: 2025, end: 202506
  10. TREPROSTINIL [Concomitant]
     Active Substance: TREPROSTINIL
     Dosage: 3.125 MG (1 TABLET OF 2.5 MG AND 0.125 MG EACH AND 2 TABLETS OF 0.25 MG), THRICE A DAY
     Route: 048
     Dates: start: 202506
  11. TREPROSTINIL [Concomitant]
     Active Substance: TREPROSTINIL
     Route: 048
     Dates: start: 202409
  12. ORENITRAM [Concomitant]
     Active Substance: TREPROSTINIL
     Indication: Pulmonary arterial hypertension
     Route: 048
  13. ORENITRAM [Concomitant]
     Active Substance: TREPROSTINIL
     Dosage: 1.875 MILLIGRAM (1 TABLET OF 1 MG, 3 TABLETS OF 0.25 MG AND 1 TABLET OF 0.125 MG), THRICE A DAY
     Route: 048
  14. ORENITRAM [Concomitant]
     Active Substance: TREPROSTINIL
     Dosage: 1.75 MILLIGRAM (1 TABLET OF 1 MG AND 3 TABLETS OF 0.25 MG), THRICE A DAY
     Route: 065
  15. ORENITRAM [Concomitant]
     Active Substance: TREPROSTINIL
     Dosage: 2.25 MILLIGRAM (2 TABLETS OF 1 MG AND 1 TABLET OF 0.25 MG), THRICE A DAY
     Route: 065
  16. ORENITRAM [Concomitant]
     Active Substance: TREPROSTINIL
     Dosage: 2.5 MILLIGRAM, THRICE A DAY
     Route: 065
  17. ORENITRAM [Concomitant]
     Active Substance: TREPROSTINIL
     Dosage: 2.625 MILLIGRAM, THRICE A DAY
     Route: 065
  18. ORENITRAM [Concomitant]
     Active Substance: TREPROSTINIL
     Dosage: 3.375 MILLIGRAM (1 TABLET OF 0.125, 2.5 MG AND 3 TABLETS OF 0.25 MG), THRICE A DAY
     Route: 065
  19. ORENITRAM [Concomitant]
     Active Substance: TREPROSTINIL
     Dosage: 2.875 MG (1 TABLET OF 0.125 MG, 0.25 MG AND 2.5 MG EACH), THRICE A DAY
     Route: 065
  20. TADALAFIL [Concomitant]
     Active Substance: TADALAFIL
     Indication: Product used for unknown indication
     Route: 065
  21. UNSPECIFIED INGREDIENT [Concomitant]
     Active Substance: UNSPECIFIED INGREDIENT
     Indication: Product used for unknown indication
     Route: 065

REACTIONS (1)
  - Drug ineffective [Unknown]
